FAERS Safety Report 7764304-7 (Version None)
Quarter: 2011Q3

REPORT INFORMATION
  Report Type: 
  Country: None (occurrence: None)
  Receive Date: 20110916
  Receipt Date: 20020628
  Transmission Date: 20111222
  Serious: Yes (Disabling)
  Sender: FDA-Public Use
  Company Number: PHBS2002NL07723

PATIENT
  Age: 57 Year
  Sex: Female

DRUGS (1)
  1. PENCICLOVIR [Suspect]
     Indication: HERPES SIMPLEX
     Dosage: 8QD, TOPICAL
     Route: 061
     Dates: start: 20020607, end: 20020609

REACTIONS (5)
  - SWELLING FACE [None]
  - RASH PUSTULAR [None]
  - SCAB [None]
  - LIP SWELLING [None]
  - LIP PAIN [None]
